FAERS Safety Report 7028445-4 (Version None)
Quarter: 2010Q4

REPORT INFORMATION
  Report Type: 
  Country: None (occurrence: None)
  Receive Date: 20101005
  Receipt Date: 20100928
  Transmission Date: 20110411
  Serious: Yes (Hospitalization)
  Sender: FDA-Public Use
  Company Number: US-EISAI INC.-E2020-07606-SPO-US

PATIENT
  Age: 67 Year
  Sex: Female

DRUGS (2)
  1. ARICEPT [Suspect]
     Indication: PRODUCT USED FOR UNKNOWN INDICATION
     Route: 048
     Dates: start: 20040101
  2. NAMENDA [Concomitant]
     Dates: start: 20100101

REACTIONS (4)
  - CROHN'S DISEASE [None]
  - DIARRHOEA [None]
  - LARGE INTESTINAL ULCER [None]
  - WEIGHT DECREASED [None]
